FAERS Safety Report 4750500-X (Version None)
Quarter: 2005Q3

REPORT INFORMATION
  Report Type: 
  Country: None (occurrence: None)
  Receive Date: 20050823
  Receipt Date: 20050815
  Transmission Date: 20060218
  Serious: Yes (Hospitalization, Other)
  Sender: FDA-Public Use
  Company Number: GB-JNJFOC-20050400063

PATIENT
  Sex: Female
  Weight: 100 kg

DRUGS (5)
  1. PROPULSID [Suspect]
     Indication: GASTROOESOPHAGEAL REFLUX DISEASE
     Route: 048
  2. PREDNISOLONE [Concomitant]
     Indication: POLYMYALGIA
  3. FLUOXETINE [Concomitant]
     Indication: DEPRESSION
  4. LANSOPRAZOLE [Concomitant]
     Indication: GASTROOESOPHAGEAL REFLUX DISEASE
  5. FERROUS SULFATE TAB [Concomitant]
     Indication: ANAEMIA

REACTIONS (1)
  - CEREBRAL INFARCTION [None]
